FAERS Safety Report 10087032 (Version 1)
Quarter: 2014Q2

REPORT INFORMATION
  Report Type: Spontaneous
  Country: DE (occurrence: DE)
  Receive Date: 20140418
  Receipt Date: 20140418
  Transmission Date: 20141212
  Serious: Yes (Other)
  Sender: FDA-Public Use
  Company Number: DE-ELI_LILLY_AND_COMPANY-DE201404001819

PATIENT
  Age: 63 Year
  Sex: Female

DRUGS (7)
  1. CYMBALTA [Suspect]
     Indication: PAIN
     Dosage: 30 MG, UNKNOWN
     Route: 048
     Dates: start: 20140227, end: 20140302
  2. CYMBALTA [Suspect]
     Indication: FIBROMYALGIA
  3. ENALAPRIL PLUS [Concomitant]
  4. L-THYROXIN [Concomitant]
  5. FUROSEMID                          /00032601/ [Concomitant]
  6. PROMETHAZIN [Concomitant]
  7. XARELTO [Concomitant]

REACTIONS (4)
  - Pharyngeal oedema [Recovered/Resolved]
  - Orthopnoea [Recovered/Resolved]
  - Hyperhidrosis [Recovered/Resolved]
  - Dry mouth [Recovered/Resolved]
